FAERS Safety Report 4874427-8 (Version None)
Quarter: 2006Q1

REPORT INFORMATION
  Report Type: 
  Country: None (occurrence: None)
  Receive Date: 20060104
  Receipt Date: 20051222
  Transmission Date: 20060701
  Serious: Yes (Hospitalization)
  Sender: FDA-Public Use
  Company Number: 2005PV006149

PATIENT
  Age: 59 Year
  Sex: Female
  Weight: 99.7913 kg

DRUGS (3)
  1. BYETTA [Suspect]
     Indication: DIABETES MELLITUS
     Dosage: 5MCG; BID; SC
     Route: 058
     Dates: start: 20051205
  2. NPH INSULIN [Concomitant]
  3. GLUCOPHAGE [Concomitant]

REACTIONS (4)
  - ABDOMINAL DISTENSION [None]
  - MUSCLE STRAIN [None]
  - NAUSEA [None]
  - PAIN [None]
